FAERS Safety Report 12970097 (Version 1)
Quarter: 2016Q4

REPORT INFORMATION
  Report Type: Spontaneous
  Country: US (occurrence: US)
  Receive Date: 20161122
  Receipt Date: 20161122
  Transmission Date: 20170207
  Serious: Yes (Hospitalization, Disabling)
  Sender: FDA-Public Use
  Company Number: None

PATIENT
  Age: 56 Year
  Sex: Female
  Weight: 88.45 kg

DRUGS (21)
  1. LEVALBUTEROL. [Suspect]
     Active Substance: LEVALBUTEROL
     Indication: ASTHMA
  2. SINGULAIR [Concomitant]
     Active Substance: MONTELUKAST SODIUM
  3. HCTZ [Concomitant]
     Active Substance: HYDROCHLOROTHIAZIDE
  4. MELATONIN [Concomitant]
     Active Substance: MELATONIN
  5. PREDISONE [Concomitant]
     Active Substance: PREDNISONE
  6. MULTIVIT [Concomitant]
     Active Substance: VITAMINS
  7. LEVALBUTEROL. [Suspect]
     Active Substance: LEVALBUTEROL
     Indication: BRONCHITIS VIRAL
  8. SYNTHROID [Concomitant]
     Active Substance: LEVOTHYROXINE SODIUM
  9. VITAMIN C [Concomitant]
     Active Substance: ASCORBIC ACID
  10. LEVALBUTEROL. [Suspect]
     Active Substance: LEVALBUTEROL
     Indication: COMPUTERISED TOMOGRAM
  11. IODINATED CT CONTRAST DYE [Suspect]
     Active Substance: IODINE
  12. DEXTROMETHORPHAN [Suspect]
     Active Substance: DEXTROMETHORPHAN
  13. LEVALBUTEROL. [Suspect]
     Active Substance: LEVALBUTEROL
     Indication: PULMONARY EMBOLISM
  14. QUINIPRIL [Concomitant]
  15. COQ10 [Concomitant]
     Active Substance: UBIDECARENONE
  16. NASONEX [Concomitant]
     Active Substance: MOMETASONE FUROATE
  17. VITAMIN D3 [Concomitant]
     Active Substance: CHOLECALCIFEROL
  18. OMEPRAMAZOLE [Concomitant]
  19. IBUPROFEN. [Concomitant]
     Active Substance: IBUPROFEN
  20. OMEGA 3 [Concomitant]
     Active Substance: OMEGA-3 FATTY ACIDS
  21. PROBIOTIC [Concomitant]
     Active Substance: PROBIOTICS NOS

REACTIONS (8)
  - Feeling hot [None]
  - Fibrin D dimer increased [None]
  - Dyspnoea [None]
  - Sputum abnormal [None]
  - Oedema [None]
  - Heart rate increased [None]
  - Contrast media reaction [None]
  - Blood pressure increased [None]

NARRATIVE: CASE EVENT DATE: 20161112
